FAERS Safety Report 5916977-9 (Version None)
Quarter: 2008Q4

REPORT INFORMATION
  Report Type: 
  Country: None (occurrence: None)
  Receive Date: 20081013
  Receipt Date: 20080929
  Transmission Date: 20090506
  Serious: Yes (Death)
  Sender: FDA-Public Use
  Company Number: US-BAUSCH-2008BL004196

PATIENT
  Age: 78 Year
  Sex: Female

DRUGS (6)
  1. ATROPINE SULFATE OPHTHALMIC SOLUTION USP 1% [Suspect]
     Indication: OFF LABEL USE
     Route: 060
     Dates: start: 20080723, end: 20080723
  2. ATROPINE SULFATE OPHTHALMIC SOLUTION USP 1% [Suspect]
     Indication: SALIVARY HYPERSECRETION
     Route: 060
     Dates: start: 20080723, end: 20080723
  3. ATROPINE SULFATE OPHTHALMIC SOLUTION USP 1% [Suspect]
     Route: 060
     Dates: start: 20080723, end: 20080723
  4. ATROPINE SULFATE OPHTHALMIC SOLUTION USP 1% [Suspect]
     Route: 060
     Dates: start: 20080723, end: 20080723
  5. MORPHINE [Concomitant]
     Indication: RESPIRATION ABNORMAL
     Route: 060
  6. OXYGEN [Concomitant]
     Route: 045

REACTIONS (4)
  - COMA [None]
  - HALLUCINATION [None]
  - RESPIRATORY DISTRESS [None]
  - TREMOR [None]
